FAERS Safety Report 20820079 (Version 1)
Quarter: 2022Q2

REPORT INFORMATION
  Report Type: Spontaneous
  Country: AU (occurrence: AU)
  Receive Date: 20220512
  Receipt Date: 20220512
  Transmission Date: 20220721
  Serious: Yes (Other)
  Sender: FDA-Public Use
  Company Number: AU-NOVARTISPH-NVSC2022AU107223

PATIENT
  Sex: Male

DRUGS (11)
  1. POSACONAZOLE [Suspect]
     Active Substance: POSACONAZOLE
     Indication: Haemophagocytic lymphohistiocytosis
     Dosage: 300 MG (STRONG CYP3A4 INHIBITORS)
     Route: 065
     Dates: start: 20220411
  2. ETOPOSIDE [Suspect]
     Active Substance: ETOPOSIDE
     Indication: Haemophagocytic lymphohistiocytosis
     Dosage: 150 MG/M2
     Route: 065
  3. RITUXIMAB [Suspect]
     Active Substance: RITUXIMAB
     Indication: Haemophagocytic lymphohistiocytosis
     Dosage: 375 MG/M2
     Route: 065
  4. RITUXIMAB [Suspect]
     Active Substance: RITUXIMAB
     Indication: Epstein-Barr viraemia
  5. CIPROFLOXACIN [Suspect]
     Active Substance: CIPROFLOXACIN
     Indication: Haemophagocytic lymphohistiocytosis
     Dosage: 500 MG, BID
     Route: 065
     Dates: start: 20220502
  6. VALACYCLOVIR HYDROCHLORIDE [Suspect]
     Active Substance: VALACYCLOVIR HYDROCHLORIDE
     Indication: Haemophagocytic lymphohistiocytosis
     Dosage: 1000 MG
     Route: 065
     Dates: start: 20220407
  7. RISPERIDONE [Suspect]
     Active Substance: RISPERIDONE
     Indication: Haemophagocytic lymphohistiocytosis
     Dosage: 0.5 MG, BID
     Route: 065
     Dates: start: 20220407
  8. DEXAMETHASONE [Suspect]
     Active Substance: DEXAMETHASONE
     Indication: Haemophagocytic lymphohistiocytosis
     Dosage: 12 MG
     Route: 065
  9. ANAKINRA [Suspect]
     Active Substance: ANAKINRA
     Indication: Haemophagocytic lymphohistiocytosis
     Dosage: 1600 MG
     Route: 042
  10. SULFAMETHOXAZOLE\TRIMETHOPRIM [Suspect]
     Active Substance: SULFAMETHOXAZOLE\TRIMETHOPRIM
     Indication: Haemophagocytic lymphohistiocytosis
     Dosage: 960 MG
     Route: 065
     Dates: start: 20220408
  11. FLECAINIDE [Suspect]
     Active Substance: FLECAINIDE
     Indication: Haemophagocytic lymphohistiocytosis
     Dosage: 50 MG, BID
     Route: 065
     Dates: start: 20220406

REACTIONS (2)
  - Epstein-Barr viraemia [Unknown]
  - Disease recurrence [Unknown]
